FAERS Safety Report 5155027-1 (Version None)
Quarter: 2006Q4

REPORT INFORMATION
  Report Type: 
  Country: None (occurrence: None)
  Receive Date: 20061121
  Receipt Date: 20061025
  Transmission Date: 20070319
  Serious: Yes (Life-Threatening, Hospitalization)
  Sender: FDA-Public Use
  Company Number: SE-ROCHE-468576

PATIENT
  Age: 27 Month
  Sex: Female
  Weight: 10.2 kg

DRUGS (16)
  1. CELLCEPT [Suspect]
     Indication: DRUG USE FOR UNKNOWN INDICATION
     Route: 042
     Dates: start: 20061024
  2. CLAFORAN [Concomitant]
  3. DOKTACILLIN [Concomitant]
  4. CATAPRESAN [Concomitant]
  5. INDERAL [Concomitant]
  6. 1 CONCOMITANT DRUG [Concomitant]
     Dosage: TRAMDATE
  7. METHYLPREDNISOLONE [Concomitant]
     Dosage: SOLUMEDROL INFUSION
  8. IMURAN [Concomitant]
  9. INDERAL [Concomitant]
  10. COZAAR [Concomitant]
  11. ANDAPSIN [Concomitant]
  12. ALVEDON [Concomitant]
  13. FLAGYL [Concomitant]
  14. PROGRAF [Concomitant]
  15. IMUREL [Concomitant]
  16. PREDNISOLONE [Concomitant]

REACTIONS (2)
  - HYPOTENSION [None]
  - SHOCK [None]
